FAERS Safety Report 13919397 (Version 1)
Quarter: 2017Q3

REPORT INFORMATION
  Report Type: Spontaneous
  Country: US (occurrence: None)
  Receive Date: 20170828
  Receipt Date: 20170828
  Transmission Date: 20171127
  Serious: No
  Sender: FDA-Public Use
  Company Number: None

PATIENT
  Age: 69 Year
  Sex: Male

DRUGS (1)
  1. ADALIMUMAB [Suspect]
     Active Substance: ADALIMUMAB
     Dosage: FREQUENCY - OTHER
     Route: 058
     Dates: start: 20170412, end: 20170620

REACTIONS (1)
  - Palpitations [None]

NARRATIVE: CASE EVENT DATE: 20170620
